FAERS Safety Report 8828615 (Version 1)
Quarter: 2012Q4

REPORT INFORMATION
  Report Type: Report from Study
  Country: DE (occurrence: DE)
  Receive Date: 20121005
  Receipt Date: 20121005
  Transmission Date: 20130627
  Serious: Yes (Hospitalization)
  Sender: FDA-Public Use
  Company Number: DE-AMGEN-DEUCT2012062096

PATIENT
  Age: 82 Year
  Sex: Female
  Weight: 76 kg

DRUGS (6)
  1. ETANERCEPT [Suspect]
     Indication: PRODUCT USED FOR UNKNOWN INDICATION
     Dosage: UNK
     Dates: start: 201109, end: 20111213
  2. PREDNISOLONE [Concomitant]
     Dosage: 5 UNK, UNK
     Dates: start: 200801
  3. PREDNISOLONE [Concomitant]
     Dosage: 5 mg, qd
  4. DEKRISTOL [Concomitant]
     Dosage: UNK
     Dates: start: 200801
  5. ARCOXIA [Concomitant]
     Dosage: UNK
     Dates: start: 201110
  6. ARCOXIA [Concomitant]
     Dosage: 90 mg, qd

REACTIONS (2)
  - Intervertebral disc protrusion [Recovered/Resolved]
  - Spinal column stenosis [Recovered/Resolved]
